FAERS Safety Report 25297429 (Version 1)
Quarter: 2025Q2

REPORT INFORMATION
  Report Type: Spontaneous
  Country: US (occurrence: US)
  Receive Date: 20250511
  Receipt Date: 20250511
  Transmission Date: 20250716
  Serious: No
  Sender: SANOFI AVENTIS
  Company Number: US-SA-2025SA132928

PATIENT
  Sex: Male
  Weight: 99.79 kg

DRUGS (7)
  1. DUPIXENT [Suspect]
     Active Substance: DUPILUMAB
     Indication: Neurodermatitis
     Dosage: 300 MG, QOW
     Route: 058
  2. PRAVASTATIN SODIUM [Concomitant]
     Active Substance: PRAVASTATIN SODIUM
  3. ALLOPURINOL [Concomitant]
     Active Substance: ALLOPURINOL
  4. NEBIVOLOL [Concomitant]
     Active Substance: NEBIVOLOL
  5. PIOGLITAZONE [Concomitant]
     Active Substance: PIOGLITAZONE
  6. ISOSORBIDE MONONITRATE [Concomitant]
     Active Substance: ISOSORBIDE MONONITRATE
  7. JANUVIA [Concomitant]
     Active Substance: SITAGLIPTIN PHOSPHATE

REACTIONS (2)
  - Skin ulcer [Unknown]
  - Skin disorder [Unknown]
